FAERS Safety Report 14327407 (Version 3)
Quarter: 2019Q3

REPORT INFORMATION
  Report Type: Report from Study
  Country: BR (occurrence: BR)
  Receive Date: 20171227
  Receipt Date: 20190902
  Transmission Date: 20191004
  Serious: Yes (Life-Threatening, Hospitalization, Other)
  Sender: FDA-Public Use
  Company Number: BR-BRISTOL-MYERS SQUIBB COMPANY-BMS-2017-067975

PATIENT
  Age: 78 Year
  Sex: Female

DRUGS (1)
  1. ABATACEPT [Suspect]
     Active Substance: ABATACEPT
     Indication: RHEUMATOID ARTHRITIS
     Dosage: 500 MILLIGRAM, QMO
     Route: 042

REACTIONS (6)
  - Cardiac disorder [Unknown]
  - Intestinal prolapse [Recovering/Resolving]
  - Pneumonia [Unknown]
  - Lung disorder [Unknown]
  - Urinary tract infection [Unknown]
  - Pyelonephritis [Unknown]

NARRATIVE: CASE EVENT DATE: 201712
